FAERS Safety Report 16740961 (Version 6)
Quarter: 2020Q1

REPORT INFORMATION
  Report Type: Report from Study
  Country: DE (occurrence: DE)
  Receive Date: 20190826
  Receipt Date: 20200325
  Transmission Date: 20200409
  Serious: Yes (Hospitalization, Other)
  Sender: FDA-Public Use
  Company Number: DE-ROCHE-2386588

PATIENT
  Sex: Female

DRUGS (14)
  1. ROACTEMRA [Suspect]
     Active Substance: TOCILIZUMAB
     Dosage: 162 MILLIGRAM, QWK
     Route: 058
     Dates: start: 20190118
  2. VOLIBRIS [Suspect]
     Active Substance: AMBRISENTAN
     Indication: GOUT
     Dosage: 1 DOSAGE FORM, QD
     Route: 048
  3. OMEPRAZOLE. [Suspect]
     Active Substance: OMEPRAZOLE
     Indication: PRODUCT USED FOR UNKNOWN INDICATION
     Dosage: 1 DF, BID (1 - 0 - 1)
     Route: 048
  4. ELIQUIS [Suspect]
     Active Substance: APIXABAN
     Indication: CEREBROVASCULAR ACCIDENT PROPHYLAXIS
     Dosage: 2.5 MG BID
     Route: 065
  5. AMBRISENTAN [Suspect]
     Active Substance: AMBRISENTAN
     Dosage: 30 MILLIGRAM, QD
     Route: 065
  6. ROACTEMRA [Suspect]
     Active Substance: TOCILIZUMAB
     Indication: RHEUMATOID ARTHRITIS
     Route: 058
     Dates: start: 20150427
  7. AMBRISENTAN [Suspect]
     Active Substance: AMBRISENTAN
     Indication: PRODUCT USED FOR UNKNOWN INDICATION
     Dosage: 30 MG, QD
     Route: 065
  8. SILDENAFIL CITRATE. [Suspect]
     Active Substance: SILDENAFIL CITRATE
     Indication: PULMONARY HYPERTENSION
     Dosage: 60 MILLIGRAM, DAILY DOSE
     Route: 065
  9. LYRICA [Suspect]
     Active Substance: PREGABALIN
     Indication: PRODUCT USED FOR UNKNOWN INDICATION
     Dosage: 100 MG, TID (1 - 1 - 1)
     Route: 065
  10. QUENSYL [Suspect]
     Active Substance: HYDROXYCHLOROQUINE
     Indication: PRODUCT USED FOR UNKNOWN INDICATION
     Dosage: 1 DF, BID (1 - 0 - 1)
     Route: 065
  11. RAMIPRIL. [Suspect]
     Active Substance: RAMIPRIL
     Indication: PRODUCT USED FOR UNKNOWN INDICATION
     Dosage: 1 DF, BID (1 - 0 - 1)
     Route: 048
  12. SPASMOLYT [Suspect]
     Active Substance: TROSPIUM CHLORIDE
     Dosage: 15 (UNIT NOT SPECIFIED), QD ((1 - 0 - 0)
     Route: 065
  13. VOLIBRIS [Suspect]
     Active Substance: AMBRISENTAN
     Indication: GOUT
     Dosage: 30 MILLIGRAM, QD
     Route: 048
  14. SPASMOLYT [Suspect]
     Active Substance: TROSPIUM CHLORIDE
     Indication: PRODUCT USED FOR UNKNOWN INDICATION
     Dosage: 30 MG (0 -0 -1)
     Route: 065

REACTIONS (17)
  - Nasopharyngitis [Recovered/Resolved]
  - Ligament sprain [Recovering/Resolving]
  - Arthralgia [Not Recovered/Not Resolved]
  - Atrial fibrillation [Recovered/Resolved]
  - Pain in extremity [Recovered/Resolved]
  - Arthropathy [Unknown]
  - Rheumatoid arthritis [Not Recovered/Not Resolved]
  - Oedema peripheral [Recovered/Resolved]
  - Bronchitis [Recovered/Resolved]
  - Arthralgia [Not Recovered/Not Resolved]
  - Pulmonary hypertension [Not Recovered/Not Resolved]
  - Peripheral coldness [Recovered/Resolved]
  - Abdominal pain upper [Recovered/Resolved]
  - Paraesthesia [Recovered/Resolved]
  - Therapeutic product effect incomplete [Unknown]
  - Visual impairment [Recovering/Resolving]
  - Somnolence [Recovered/Resolved]

NARRATIVE: CASE EVENT DATE: 20150428
